FAERS Safety Report 6297854-3 (Version None)
Quarter: 2009Q3

REPORT INFORMATION
  Report Type: 
  Country: None (occurrence: None)
  Receive Date: 20090804
  Receipt Date: 20090804
  Transmission Date: 20100115
  Serious: Yes (Hospitalization)
  Sender: FDA-Public Use
  Company Number: None

PATIENT
  Age: 65 Year
  Sex: Female
  Weight: 52.2 kg

DRUGS (1)
  1. TIGECYCLINE [Suspect]
     Indication: LOWER RESPIRATORY TRACT INFECTION
     Route: 042
     Dates: start: 20090127, end: 20090727

REACTIONS (7)
  - ASTHENIA [None]
  - CHEST DISCOMFORT [None]
  - DIZZINESS [None]
  - FLUSHING [None]
  - HYPERHIDROSIS [None]
  - NAUSEA [None]
  - WHEEZING [None]
